FAERS Safety Report 8836127 (Version 2)
Quarter: 2012Q4

REPORT INFORMATION
  Report Type: 
  Country: US (occurrence: US)
  Receive Date: 20121011
  Receipt Date: 20121110
  Transmission Date: 20130627
  Serious: Yes (Other)
  Sender: FDA-Public Use
  Company Number: US-US-EMD SERONO, INC.-7166203

PATIENT
  Sex: Female
  Weight: 112 kg

DRUGS (8)
  1. REBIF [Suspect]
     Indication: RELAPSING-REMITTING MULTIPLE SCLEROSIS
     Route: 058
     Dates: start: 20120906
  2. REBIF [Suspect]
     Route: 058
  3. ASPIRIN [Concomitant]
     Indication: THROMBOSIS
  4. COUMADIN [Concomitant]
     Indication: THROMBOSIS
  5. ADVIL [Concomitant]
     Indication: PREMEDICATION
  6. TYLENOL [Concomitant]
     Indication: PREMEDICATION
  7. BUPROPION [Concomitant]
     Indication: DEPRESSION
  8. SUCRALFATE [Concomitant]
     Indication: ABDOMINAL DISCOMFORT

REACTIONS (8)
  - Cardiac flutter [Not Recovered/Not Resolved]
  - Dyspnoea [Not Recovered/Not Resolved]
  - Heart rate increased [Unknown]
  - Nasopharyngitis [Not Recovered/Not Resolved]
  - Influenza [Recovered/Resolved]
  - Feeling hot [Not Recovered/Not Resolved]
  - Fatigue [Unknown]
  - Muscle spasms [Unknown]
